FAERS Safety Report 8050618-2 (Version None)
Quarter: 2012Q1

REPORT INFORMATION
  Report Type: 
  Country: None (occurrence: None)
  Receive Date: 20120117
  Receipt Date: 20120117
  Transmission Date: 20120608
  Serious: No
  Sender: FDA-Public Use
  Company Number: None

PATIENT
  Age: 38 Year
  Sex: Female
  Weight: 58.967 kg

DRUGS (2)
  1. CYMBALTA [Suspect]
     Indication: DEPRESSION
     Dosage: 60 MG
     Route: 048
     Dates: start: 20111010, end: 20120110
  2. LATUDA [Concomitant]

REACTIONS (12)
  - FEELING OF BODY TEMPERATURE CHANGE [None]
  - TREMOR [None]
  - SYNCOPE [None]
  - BLOOD MAGNESIUM [None]
  - DIZZINESS [None]
  - VISION BLURRED [None]
  - FEELING ABNORMAL [None]
  - THERAPY CESSATION [None]
  - HEADACHE [None]
  - COLD SWEAT [None]
  - DISTURBANCE IN ATTENTION [None]
  - HYPERHIDROSIS [None]
